FAERS Safety Report 9919748 (Version 2)
Quarter: 2014Q1

REPORT INFORMATION
  Report Type: Spontaneous
  Country: US (occurrence: US)
  Receive Date: 20140224
  Receipt Date: 20140224
  Transmission Date: 20141002
  Serious: Yes (Disabling)
  Sender: FDA-Public Use
  Company Number: US-GE HEALTHCARE MEDICAL DIAGNOSTICS-OSCN-PR-0804S-0221

PATIENT
  Age: 48 Year
  Sex: Male

DRUGS (3)
  1. OMNISCAN [Suspect]
     Indication: SEPSIS
     Route: 042
     Dates: start: 20060616, end: 20060616
  2. OMNISCAN [Suspect]
     Indication: ABSCESS
     Route: 042
     Dates: start: 20060620, end: 20060620
  3. OMNISCAN [Suspect]
     Indication: BACK PAIN

REACTIONS (1)
  - Nephrogenic systemic fibrosis [Not Recovered/Not Resolved]
